FAERS Safety Report 8904884 (Version 1)
Quarter: 2012Q4

REPORT INFORMATION
  Report Type: 
  Country: AR (occurrence: AR)
  Receive Date: 20121112
  Receipt Date: 20121112
  Transmission Date: 20130627
  Serious: Yes (Hospitalization)
  Sender: FDA-Public Use
  Company Number: PHHY2012AR103582

PATIENT
  Sex: Male

DRUGS (1)
  1. DIOVAN [Suspect]
     Indication: HYPERTENSION
     Dosage: 1 UKN, daily

REACTIONS (4)
  - Fall [Recovering/Resolving]
  - Balance disorder [Recovering/Resolving]
  - Dysstasia [Recovering/Resolving]
  - Joint injury [Recovering/Resolving]
